FAERS Safety Report 7835878-2 (Version None)
Quarter: 2011Q4

REPORT INFORMATION
  Report Type: 
  Country: None (occurrence: None)
  Receive Date: 20111024
  Receipt Date: 20101117
  Transmission Date: 20120403
  Serious: No
  Sender: FDA-Public Use
  Company Number: US-ABBOTT-10P-163-0686314-00

PATIENT
  Sex: Female

DRUGS (3)
  1. LUPRON [Suspect]
     Indication: PRODUCT USED FOR UNKNOWN INDICATION
  2. SYNAREL [Suspect]
     Indication: PRODUCT USED FOR UNKNOWN INDICATION
  3. CLOMID [Concomitant]
     Indication: PRODUCT USED FOR UNKNOWN INDICATION
     Dates: start: 20100101, end: 20100401

REACTIONS (1)
  - MALAISE [None]
